FAERS Safety Report 5477009-2 (Version None)
Quarter: 2007Q4

REPORT INFORMATION
  Report Type: 
  Country: None (occurrence: None)
  Receive Date: 20071003
  Receipt Date: 20071003
  Transmission Date: 20080405
  Serious: No
  Sender: FDA-Public Use
  Company Number: None

PATIENT
  Age: 35 Year
  Sex: Female
  Weight: 67.1324 kg

DRUGS (1)
  1. STRATTERA [Suspect]
     Indication: AFFECTIVE DISORDER
     Dosage: 10MG  1 DAY
     Dates: start: 20070905, end: 20071002

REACTIONS (4)
  - CHILLS [None]
  - HYPERHIDROSIS [None]
  - MUSCLE RUPTURE [None]
  - THIRST [None]
